FAERS Safety Report 6029502-1 (Version None)
Quarter: 2008Q4

REPORT INFORMATION
  Report Type: 
  Country: None (occurrence: None)
  Receive Date: 20081222
  Receipt Date: 20080922
  Transmission Date: 20090506
  Serious: No
  Sender: FDA-Public Use
  Company Number: US-WYE-H06102508

PATIENT
  Age: 60 Year
  Sex: Female

DRUGS (3)
  1. PRISTIQ [Suspect]
     Indication: ANXIETY
     Dosage: 50 MG 1X PER 1 DAY, ORAL
     Route: 048
     Dates: start: 20080901
  2. PRISTIQ [Suspect]
     Indication: DEPRESSION
     Dosage: 50 MG 1X PER 1 DAY, ORAL
     Route: 048
     Dates: start: 20080901
  3. FOSAMAX [Concomitant]

REACTIONS (6)
  - ANXIETY [None]
  - CHEST DISCOMFORT [None]
  - FATIGUE [None]
  - HYPERHIDROSIS [None]
  - MOOD ALTERED [None]
  - PARAESTHESIA [None]
